FAERS Safety Report 4479065-7 (Version None)
Quarter: 2004Q4

REPORT INFORMATION
  Report Type: 
  Country: None (occurrence: None)
  Receive Date: 20040923
  Receipt Date: 20040622
  Transmission Date: 20050328
  Serious: No
  Sender: FDA-Public Use
  Company Number: 207326

PATIENT
  Age: 57 Year
  Sex: Male

DRUGS (7)
  1. AVASTIN [Suspect]
     Indication: COLORECTAL CANCER METASTATIC
     Dosage: 400 MG, SINGLE, INTRAVENOUS; 350 MG, Q2 W INTRAVENOUS
     Route: 042
     Dates: start: 20040420, end: 20040420
  2. AVASTIN [Suspect]
     Indication: COLORECTAL CANCER METASTATIC
     Dosage: 400 MG, SINGLE, INTRAVENOUS; 350 MG, Q2 W INTRAVENOUS
     Route: 042
     Dates: start: 20040501
  3. FLUOROURACIL [Concomitant]
  4. LEUCOVORIN (LEUCOVORIN CALCIUM) [Concomitant]
  5. PHENERGAN EXPECTOR W/CODEINE (PROMETHAZINE HYDROCHLORIDE, CODEINE PHOS [Concomitant]
  6. DILAUDID [Concomitant]
  7. HYDROCHLOROTHIAZIDE [Concomitant]

REACTIONS (1)
  - HAEMOPTYSIS [None]
